FAERS Safety Report 7088778-2 (Version None)
Quarter: 2010Q4

REPORT INFORMATION
  Report Type: 
  Country: None (occurrence: None)
  Receive Date: 20101028
  Receipt Date: 20101012
  Transmission Date: 20110411
  Serious: Yes (Hospitalization, Other)
  Sender: FDA-Public Use
  Company Number: AMAG201000375

PATIENT
  Age: 66 Year
  Sex: Male
  Weight: 82 kg

DRUGS (10)
  1. FERAHEME [Suspect]
     Indication: IRON DEFICIENCY ANAEMIA
     Dosage: 420 MG, SINGLE, INTRAVENOUS
     Route: 042
     Dates: start: 20101012, end: 20101012
  2. ACYCLOVIR [Concomitant]
  3. BACTRIM [Concomitant]
  4. FINASTERIDE [Concomitant]
  5. FLOMAX [Concomitant]
  6. LIPITOR [Concomitant]
  7. MYFORTIC [Concomitant]
  8. NIFEDIPINE A (NIFEDIPINE) [Concomitant]
  9. PROGRAF [Concomitant]
  10. SIMVASTATIN [Concomitant]

REACTIONS (19)
  - ASTHENIA [None]
  - COUGH [None]
  - DEFAECATION URGENCY [None]
  - DYSPNOEA [None]
  - ERYTHEMA [None]
  - FAECAL INCONTINENCE [None]
  - FEELING ABNORMAL [None]
  - GRAND MAL CONVULSION [None]
  - HEADACHE [None]
  - HYPERHIDROSIS [None]
  - HYPERSENSITIVITY [None]
  - HYPOTENSION [None]
  - MICTURITION URGENCY [None]
  - PALLOR [None]
  - PRURITUS [None]
  - RETCHING [None]
  - TACHYCARDIA [None]
  - UNRESPONSIVE TO STIMULI [None]
  - URINARY INCONTINENCE [None]
